FAERS Safety Report 23616608 (Version 1)
Quarter: 2024Q1

REPORT INFORMATION
  Report Type: Report from Study
  Country: CA (occurrence: CA)
  Receive Date: 20240311
  Receipt Date: 20240311
  Transmission Date: 20240410
  Serious: Yes (Hospitalization, Other)
  Sender: FDA-Public Use
  Company Number: CA-KOREA IPSEN Pharma-2022-28466

PATIENT
  Age: 80 Year
  Sex: Male

DRUGS (5)
  1. LANREOTIDE ACETATE [Suspect]
     Active Substance: LANREOTIDE ACETATE
     Indication: Gastroenteropancreatic neuroendocrine tumour disease
     Dosage: DEEP-SC
     Route: 058
     Dates: start: 20220914
  2. ASPIRIN [Concomitant]
     Active Substance: ASPIRIN
     Dosage: DIE
  3. VITAMIN D [Concomitant]
     Active Substance: VITAMIN D NOS
  4. ROSUVASTATIN [Concomitant]
     Active Substance: ROSUVASTATIN
  5. AMLODIPINE [Concomitant]
     Active Substance: AMLODIPINE BESYLATE
     Dosage: DIE

REACTIONS (30)
  - Pyrexia [Recovered/Resolved]
  - Bradycardia [Recovered/Resolved]
  - Abdominal pain [Not Recovered/Not Resolved]
  - Liver abscess [Unknown]
  - Abdominal pain upper [Unknown]
  - Cholecystectomy [Unknown]
  - Metastasis [Unknown]
  - Back pain [Not Recovered/Not Resolved]
  - Limb discomfort [Not Recovered/Not Resolved]
  - Asthenia [Recovered/Resolved]
  - Dizziness [Recovered/Resolved]
  - COVID-19 [Recovered/Resolved]
  - Pain [Not Recovered/Not Resolved]
  - Injection site pain [Unknown]
  - Wrong technique in product usage process [Unknown]
  - Heart rate decreased [Recovered/Resolved]
  - Asthenia [Recovered/Resolved]
  - Decreased appetite [Recovered/Resolved]
  - White blood cell count increased [Unknown]
  - Gastritis [Unknown]
  - Body temperature increased [Unknown]
  - Constipation [Unknown]
  - Abdominal pain [Recovered/Resolved]
  - Post procedural haemorrhage [Recovered/Resolved]
  - Hyperhidrosis [Not Recovered/Not Resolved]
  - Mood altered [Recovering/Resolving]
  - Depression [Recovering/Resolving]
  - Amnesia [Not Recovered/Not Resolved]
  - Limb injury [Not Recovered/Not Resolved]
  - Chondrocalcinosis [Unknown]

NARRATIVE: CASE EVENT DATE: 20220101
